FAERS Safety Report 5931079-3 (Version None)
Quarter: 2008Q4

REPORT INFORMATION
  Report Type: 
  Country: None (occurrence: None)
  Receive Date: 20081027
  Receipt Date: 20081016
  Transmission Date: 20090506
  Serious: Yes (Other)
  Sender: FDA-Public Use
  Company Number: NL-ASTRAZENECA-2008AC02779

PATIENT
  Age: 51 Year
  Sex: Female
  Weight: 72 kg

DRUGS (1)
  1. ARIMIDEX [Suspect]
     Indication: BREAST CANCER FEMALE
     Route: 048
     Dates: start: 20080415, end: 20080718

REACTIONS (5)
  - ARTHRALGIA [None]
  - GASTROINTESTINAL DISORDER [None]
  - HEADACHE [None]
  - MYALGIA [None]
  - PALPITATIONS [None]
